FAERS Safety Report 10520006 (Version 1)
Quarter: 2014Q4

REPORT INFORMATION
  Report Type: Spontaneous
  Country: FR (occurrence: FR)
  Receive Date: 20141015
  Receipt Date: 20141015
  Transmission Date: 20150528
  Serious: Yes (Hospitalization, Other)
  Sender: FDA-Public Use
  Company Number: PHHY2014FR131041

PATIENT
  Age: 65 Year
  Sex: Male

DRUGS (4)
  1. SUCCINYLCHOLINE CHLORIDE. [Suspect]
     Active Substance: SUCCINYLCHOLINE CHLORIDE
     Indication: ANAESTHESIA
  2. SEVOFLURANE. [Interacting]
     Active Substance: SEVOFLURANE
     Indication: SEDATION
  3. LITHIUM [Interacting]
     Active Substance: LITHIUM CARBONATE
     Indication: BIPOLAR I DISORDER
  4. PROPOFOL. [Concomitant]
     Active Substance: PROPOFOL
     Indication: ANAESTHESIA

REACTIONS (3)
  - Coma [Recovering/Resolving]
  - Neuromuscular block prolonged [Recovering/Resolving]
  - Potentiating drug interaction [Unknown]
